FAERS Safety Report 6698550-0 (Version None)
Quarter: 2010Q2

REPORT INFORMATION
  Report Type: 
  Country: None (occurrence: None)
  Receive Date: 20100427
  Receipt Date: 20100413
  Transmission Date: 20101027
  Serious: Yes (Hospitalization)
  Sender: FDA-Public Use
  Company Number: FR-JNJFOC-20100406364

PATIENT
  Sex: Male

DRUGS (7)
  1. IXPRIM [Suspect]
     Indication: DRUG USE FOR UNKNOWN INDICATION
     Route: 048
  2. ESOMEPRAZOLE [Suspect]
     Indication: DRUG USE FOR UNKNOWN INDICATION
     Route: 065
  3. CYMBALTA [Suspect]
     Indication: DRUG USE FOR UNKNOWN INDICATION
     Route: 065
  4. LORMETAZEPAM [Suspect]
     Indication: DRUG USE FOR UNKNOWN INDICATION
     Route: 065
  5. FLUDEX [Concomitant]
     Route: 065
  6. FENOFIBRATE [Concomitant]
     Route: 065
  7. HALDOL [Concomitant]
     Route: 065

REACTIONS (4)
  - AGITATION [None]
  - DELUSION [None]
  - HALLUCINATION, AUDITORY [None]
  - SLEEP PHASE RHYTHM DISTURBANCE [None]
